FAERS Safety Report 18624970 (Version 24)
Quarter: 2024Q1

REPORT INFORMATION
  Report Type: Spontaneous
  Country: CA (occurrence: CA)
  Receive Date: 20201216
  Receipt Date: 20240315
  Transmission Date: 20240409
  Serious: Yes (Other)
  Sender: FDA-Public Use
  Company Number: CA-CELLTRION INC.-2019CA026999

PATIENT

DRUGS (40)
  1. INFLECTRA [Suspect]
     Active Substance: INFLIXIMAB-DYYB
     Indication: Crohn^s disease
     Dosage: 5 MG/KG, AT 0, 2, 6, THEN EVERY 8 WEEKS
     Route: 042
     Dates: start: 20191030
  2. INFLECTRA [Suspect]
     Active Substance: INFLIXIMAB-DYYB
     Dosage: 5 MG/KG, AT 0, 2, 6, THEN EVERY 8 WEEKS
     Route: 042
     Dates: start: 20191114, end: 20191114
  3. INFLECTRA [Suspect]
     Active Substance: INFLIXIMAB-DYYB
     Dosage: 5 MG/KG, AT 0, 2, 6, THEN EVERY 8 WEEKS
     Route: 042
     Dates: start: 20200214
  4. INFLECTRA [Suspect]
     Active Substance: INFLIXIMAB-DYYB
     Dosage: 5 MG/KG, EVERY 6 WEEKS FOR 12 MONTHS
     Route: 042
     Dates: start: 20200414, end: 20200414
  5. INFLECTRA [Suspect]
     Active Substance: INFLIXIMAB-DYYB
     Dosage: 5 MG/KG, EVERY 6 WEEKS FOR 12 MONTHS
     Route: 042
     Dates: start: 20200414, end: 20200414
  6. INFLECTRA [Suspect]
     Active Substance: INFLIXIMAB-DYYB
     Dosage: 5 MG/KG EVERY 4 WEEKS
     Route: 042
     Dates: start: 20200512, end: 20200609
  7. INFLECTRA [Suspect]
     Active Substance: INFLIXIMAB-DYYB
     Dosage: 5 MG/KG EVERY 4 WEEKS
     Route: 042
     Dates: start: 20200610
  8. INFLECTRA [Suspect]
     Active Substance: INFLIXIMAB-DYYB
     Dosage: 5 MG/KG EVERY 4 WEEKS
     Route: 042
     Dates: start: 20200707
  9. INFLECTRA [Suspect]
     Active Substance: INFLIXIMAB-DYYB
     Dosage: 5 MG/KG EVERY 4 WEEKS
     Route: 042
     Dates: start: 20210324
  10. INFLECTRA [Suspect]
     Active Substance: INFLIXIMAB-DYYB
     Dosage: 5 MG/KG EVERY 4 WEEKS
     Route: 042
     Dates: start: 20210422, end: 20210422
  11. INFLECTRA [Suspect]
     Active Substance: INFLIXIMAB-DYYB
     Dosage: 5 MG/KG EVERY 4 WEEKS
     Route: 042
     Dates: start: 20210621
  12. INFLECTRA [Suspect]
     Active Substance: INFLIXIMAB-DYYB
     Dosage: 5 MG/KG EVERY 4 WEEKS
     Route: 042
     Dates: start: 20210719
  13. INFLECTRA [Suspect]
     Active Substance: INFLIXIMAB-DYYB
     Dosage: 5 MG/KG EVERY 4 WEEKS
     Route: 042
     Dates: start: 20210819
  14. INFLECTRA [Suspect]
     Active Substance: INFLIXIMAB-DYYB
     Dosage: 5 MG/KG EVERY 4 WEEKS
     Route: 042
     Dates: start: 20210916
  15. INFLECTRA [Suspect]
     Active Substance: INFLIXIMAB-DYYB
     Dosage: 5 MG/KG EVERY 4 WEEKS
     Route: 042
     Dates: start: 20211014
  16. INFLECTRA [Suspect]
     Active Substance: INFLIXIMAB-DYYB
     Dosage: 5 MG/KG EVERY 4 WEEKS
     Route: 042
     Dates: start: 20211109
  17. INFLECTRA [Suspect]
     Active Substance: INFLIXIMAB-DYYB
     Dosage: 5 MG/KG EVERY 4 WEEKS
     Route: 042
     Dates: start: 20220118
  18. INFLECTRA [Suspect]
     Active Substance: INFLIXIMAB-DYYB
     Dosage: 5 MG/KG EVERY 4 WEEKS
     Route: 042
     Dates: start: 20220215
  19. INFLECTRA [Suspect]
     Active Substance: INFLIXIMAB-DYYB
     Dosage: 5 MG/KG EVERY 4 WEEKS
     Route: 042
     Dates: start: 20220317
  20. INFLECTRA [Suspect]
     Active Substance: INFLIXIMAB-DYYB
     Dosage: 5 MG/KG EVERY 4 WEEKS
     Route: 042
     Dates: start: 20220412
  21. INFLECTRA [Suspect]
     Active Substance: INFLIXIMAB-DYYB
     Dosage: 5 MG/KG EVERY 4 WEEKS
     Route: 042
     Dates: start: 20220510
  22. INFLECTRA [Suspect]
     Active Substance: INFLIXIMAB-DYYB
     Dosage: 5 MG/KG EVERY 4 WEEKS
     Route: 042
     Dates: start: 20220609
  23. INFLECTRA [Suspect]
     Active Substance: INFLIXIMAB-DYYB
     Dosage: 5 MG/KG, EVERY 6 WEEK
     Route: 042
     Dates: start: 20220708
  24. INFLECTRA [Suspect]
     Active Substance: INFLIXIMAB-DYYB
     Dosage: 5 MG/KG, EVERY 6 WEEK
     Route: 042
     Dates: start: 20221102
  25. INFLECTRA [Suspect]
     Active Substance: INFLIXIMAB-DYYB
     Dosage: 5 MG/KG, EVERY 6 WEEK
     Route: 042
     Dates: start: 20221214
  26. INFLECTRA [Suspect]
     Active Substance: INFLIXIMAB-DYYB
     Dosage: 320 MG (5 MG/KG), EVERY 6 WEEK
     Route: 042
     Dates: start: 20230124
  27. INFLECTRA [Suspect]
     Active Substance: INFLIXIMAB-DYYB
     Dosage: 320 MG (5 MG/KG), EVERY 6 WEEK
     Route: 042
     Dates: start: 20230124
  28. INFLECTRA [Suspect]
     Active Substance: INFLIXIMAB-DYYB
     Dosage: 5 MG/KG, EVERY 6 WEEK
     Route: 042
     Dates: start: 20230308
  29. INFLECTRA [Suspect]
     Active Substance: INFLIXIMAB-DYYB
     Dosage: 5 MG/KG, EVERY 6 WEEK
     Route: 042
     Dates: start: 20230418
  30. INFLECTRA [Suspect]
     Active Substance: INFLIXIMAB-DYYB
     Dosage: 5 MG/KG, EVERY 6 WEEK
     Route: 042
     Dates: start: 20230530
  31. INFLECTRA [Suspect]
     Active Substance: INFLIXIMAB-DYYB
     Dosage: 5 MG/KG, EVERY 6 WEEK
     Route: 042
     Dates: start: 20230713
  32. INFLECTRA [Suspect]
     Active Substance: INFLIXIMAB-DYYB
     Dosage: 315 MG(5MG/KG), EVERY 6 WEEKS
     Route: 042
     Dates: start: 20230824
  33. INFLECTRA [Suspect]
     Active Substance: INFLIXIMAB-DYYB
     Dosage: 5 MG/KG, EVERY 6 WEEK
     Route: 042
     Dates: start: 20231005
  34. INFLECTRA [Suspect]
     Active Substance: INFLIXIMAB-DYYB
     Dosage: 5 MG/KG, EVERY 6 WEEK
     Route: 042
     Dates: start: 20231121
  35. INFLECTRA [Suspect]
     Active Substance: INFLIXIMAB-DYYB
     Dosage: 5 MG/KG, EVERY 6 WEEK
     Route: 042
     Dates: start: 20240102
  36. INFLECTRA [Suspect]
     Active Substance: INFLIXIMAB-DYYB
     Dosage: 325 MG, AFTER 9 WEEKS
     Route: 042
     Dates: start: 20240305
  37. ENTOCORT [Concomitant]
     Active Substance: BUDESONIDE
     Dosage: 3 MG, DAILY
     Route: 048
     Dates: start: 201906
  38. FERAMAX [Concomitant]
     Active Substance: IRON\POLYSACCHARIDES
     Indication: Anaemia
     Dosage: 1 DF, DOSAGE NOT AVAILABLE
     Route: 065
  39. CYANOCOBALAMIN [Concomitant]
     Active Substance: CYANOCOBALAMIN
     Dosage: UNK (INJECTION)
     Dates: end: 2020
  40. CYANOCOBALAMIN [Concomitant]
     Active Substance: CYANOCOBALAMIN
     Dosage: 1 DF, DOSAGE NOT AVAILABLE - INJECTIONS
     Route: 065

REACTIONS (21)
  - Small intestinal obstruction [Unknown]
  - Drug level below therapeutic [Not Recovered/Not Resolved]
  - Off label use [Unknown]
  - Off label use [Unknown]
  - Intentional product use issue [Unknown]
  - Inappropriate schedule of product administration [Unknown]
  - Condition aggravated [Recovered/Resolved]
  - Gastrointestinal sounds abnormal [Unknown]
  - Body temperature decreased [Unknown]
  - Haemoglobin decreased [Not Recovered/Not Resolved]
  - Serum ferritin decreased [Unknown]
  - Abdominal distension [Unknown]
  - Abdominal tenderness [Unknown]
  - Fatigue [Not Recovered/Not Resolved]
  - Headache [Unknown]
  - Influenza [Unknown]
  - Nausea [Unknown]
  - Arthralgia [Recovered/Resolved]
  - Weight decreased [Recovered/Resolved]
  - Tooth infection [Recovered/Resolved]
  - Constipation [Not Recovered/Not Resolved]

NARRATIVE: CASE EVENT DATE: 20191114
